FAERS Safety Report 5531363-1 (Version None)
Quarter: 2007Q4

REPORT INFORMATION
  Report Type: 
  Country: None (occurrence: None)
  Receive Date: 20071127
  Receipt Date: 20071113
  Transmission Date: 20080405
  Serious: Yes (Other)
  Sender: FDA-Public Use
  Company Number: SE-GDP-07403110

PATIENT
  Age: 6 Month
  Sex: Male

DRUGS (2)
  1. METVIXIA [Suspect]
     Indication: ACTINIC KERATOSIS
     Dosage: 1 DF TOTAL TOPICAL
     Route: 061
     Dates: start: 20070904, end: 20070904
  2. METVIXIA [Suspect]
     Indication: BASAL CELL CARCINOMA
     Dosage: 1 DF TOTAL TOPICAL
     Route: 061
     Dates: start: 20070904, end: 20070904

REACTIONS (1)
  - KERATITIS [None]
